FAERS Safety Report 6177564-3 (Version None)
Quarter: 2009Q2

REPORT INFORMATION
  Report Type: 
  Country: None (occurrence: None)
  Receive Date: 20090504
  Receipt Date: 20090427
  Transmission Date: 20091009
  Serious: Yes (Hospitalization)
  Sender: FDA-Public Use
  Company Number: US-ELI_LILLY_AND_COMPANY-US200904006219

PATIENT
  Sex: Male

DRUGS (5)
  1. HUMALOG MIX 75/25 [Suspect]
     Indication: TYPE 2 DIABETES MELLITUS
     Dosage: 45 U, EACH MORNING
     Dates: start: 20071001
  2. HUMALOG MIX 75/25 [Suspect]
     Dosage: 35 U, OTHER
  3. HUMALOG MIX 75/25 [Suspect]
     Dosage: 45 U, EACH EVENING
  4. LISINOPRIL [Concomitant]
     Indication: HYPERTENSION
  5. AMLODIPINE [Concomitant]
     Indication: HYPERTENSION

REACTIONS (4)
  - BLOOD GLUCOSE INCREASED [None]
  - DYSPNOEA [None]
  - HYPERTENSION [None]
  - PNEUMONIA [None]
